FAERS Safety Report 12979492 (Version 1)
Quarter: 2016Q4

REPORT INFORMATION
  Report Type: Spontaneous
  Country: CA (occurrence: CA)
  Receive Date: 20161128
  Receipt Date: 20161128
  Transmission Date: 20170207
  Serious: Yes (Other)
  Sender: FDA-Public Use
  Company Number: CA-PFIZER INC-2016549682

PATIENT
  Sex: Female

DRUGS (1)
  1. CHAMPIX [Suspect]
     Active Substance: VARENICLINE TARTRATE
     Dosage: UNK
     Dates: start: 201611, end: 201611

REACTIONS (5)
  - Fall [Unknown]
  - Seizure [Unknown]
  - Concussion [Unknown]
  - Amnesia [Unknown]
  - Head injury [Unknown]

NARRATIVE: CASE EVENT DATE: 201611
